FAERS Safety Report 15707329 (Version 1)
Quarter: 2018Q4

REPORT INFORMATION
  Report Type: Report from Study
  Country: None (occurrence: US)
  Receive Date: 20181211
  Receipt Date: 20181211
  Transmission Date: 20190205
  Serious: Yes (Hospitalization, Other)
  Sender: FDA-Public Use
  Company Number: US-ABBVIE-18S-163-2582011-00

PATIENT
  Age: 66 Year
  Sex: Female

DRUGS (1)
  1. CREON [Suspect]
     Active Substance: PANCRELIPASE AMYLASE\PANCRELIPASE LIPASE\PANCRELIPASE PROTEASE
     Indication: PRODUCT USED FOR UNKNOWN INDICATION
     Route: 065

REACTIONS (15)
  - Breast cancer [Unknown]
  - Peripheral swelling [Unknown]
  - Constipation [Unknown]
  - Abdominal tenderness [Unknown]
  - Arthralgia [Unknown]
  - Traumatic haemorrhage [Unknown]
  - Iron deficiency anaemia [Unknown]
  - Thrombocytopenia [Unknown]
  - Seroma [Unknown]
  - Chest pain [Unknown]
  - Polycythaemia [Unknown]
  - Vitamin D deficiency [Unknown]
  - Pancreatic carcinoma [Unknown]
  - Malabsorption [Unknown]
  - Nausea [Unknown]

NARRATIVE: CASE EVENT DATE: 20150527
